FAERS Safety Report 5537434-8 (Version None)
Quarter: 2007Q4

REPORT INFORMATION
  Report Type: 
  Country: None (occurrence: None)
  Receive Date: 20071207
  Receipt Date: 20071127
  Transmission Date: 20080405
  Serious: Yes (Other)
  Sender: FDA-Public Use
  Company Number: JP-ROCHE-533458

PATIENT
  Age: 4 Year
  Sex: Male
  Weight: 22 kg

DRUGS (8)
  1. TAMIFLU [Suspect]
     Dosage: FORMULATION: DRY SYRUP 3%.
     Route: 048
     Dates: start: 20070303, end: 20070303
  2. TAMIFLU [Suspect]
     Route: 048
     Dates: start: 20050314
  3. CELTECT [Concomitant]
     Route: 048
     Dates: start: 20050921
  4. POLARAMINE [Concomitant]
     Dosage: FORM: ORAL FORMULATION NOT OTHERWISE SPECIFIED
     Route: 048
     Dates: start: 20070303, end: 20070310
  5. DL-METHYLEPHEDRINE [Concomitant]
     Route: 048
     Dates: start: 20070303, end: 20070310
  6. BISOLVON [Concomitant]
     Dosage: FORM: ORAL FORMULATION NOT OTHERWISE SPECIFIED
     Route: 048
     Dates: start: 20070303, end: 20070310
  7. NEUZYM [Concomitant]
     Dosage: FORM: ORAL FORMULATION NOT OTHERWISE SPECIFIED
     Route: 048
     Dates: start: 20070303, end: 20070310
  8. HOKUNALIN [Concomitant]
     Dosage: FROM REPORTED AS TAPE, FORM: ORAL FORMULATION NOT OTHERWISE SPECIFIED
     Route: 061
     Dates: start: 20070303, end: 20070310

REACTIONS (1)
  - ABNORMAL BEHAVIOUR [None]
